APPROVED DRUG PRODUCT: LANSOPRAZOLE
Active Ingredient: LANSOPRAZOLE
Strength: 30MG
Dosage Form/Route: CAPSULE, DELAYED REL PELLETS;ORAL
Application: A203083 | Product #002 | TE Code: AB
Applicant: HETERO LABS LTD UNIT III
Approved: May 18, 2020 | RLD: No | RS: No | Type: RX